FAERS Safety Report 4630299-8 (Version None)
Quarter: 2005Q2

REPORT INFORMATION
  Report Type: 
  Country: None (occurrence: None)
  Receive Date: 20050408
  Receipt Date: 20050401
  Transmission Date: 20051028
  Serious: Yes (Death)
  Sender: FDA-Public Use
  Company Number: 200512932GDDC

PATIENT
  Age: 44 Year
  Sex: Female

DRUGS (4)
  1. ENOXAPARIN SODIUM [Suspect]
     Indication: CORONARY ANGIOPLASTY
     Route: 042
     Dates: start: 20040913, end: 20040913
  2. CLOPIDOGREL [Concomitant]
     Indication: CORONARY ANGIOPLASTY
     Route: 048
     Dates: start: 20040913, end: 20040913
  3. ASPIRIN [Concomitant]
     Indication: CORONARY ANGIOPLASTY
     Route: 048
     Dates: start: 20040913, end: 20040913
  4. ENALAPRIL [Concomitant]
     Indication: CARDIAC FAILURE
     Route: 048
     Dates: start: 20040913, end: 20040913

REACTIONS (3)
  - CORONARY ARTERY THROMBOSIS [None]
  - MYOCARDIAL INFARCTION [None]
  - VENTRICULAR FIBRILLATION [None]
